FAERS Safety Report 15599394 (Version 1)
Quarter: 2018Q4

REPORT INFORMATION
  Report Type: Spontaneous
  Country: US (occurrence: US)
  Receive Date: 20181108
  Receipt Date: 20181108
  Transmission Date: 20190205
  Serious: No
  Sender: FDA-Public Use
  Company Number: US-ALLERGAN-1773558US

PATIENT
  Age: 31 Year
  Sex: Female
  Weight: 73.16 kg

DRUGS (1)
  1. NAMENDA [Suspect]
     Active Substance: MEMANTINE HYDROCHLORIDE
     Indication: MIGRAINE
     Dosage: 10 MG, BID
     Route: 048
     Dates: start: 201502, end: 20171220

REACTIONS (2)
  - Exposure during pregnancy [Unknown]
  - Off label use [Unknown]
